FAERS Safety Report 14839651 (Version 1)
Quarter: 2018Q2

REPORT INFORMATION
  Report Type: Spontaneous
  Country: US (occurrence: US)
  Receive Date: 20180502
  Receipt Date: 20180502
  Transmission Date: 20180711
  Serious: Yes (Hospitalization, Other)
  Sender: FDA-Public Use
  Company Number: US-BAXTER-2018BAX013007

PATIENT
  Age: 67 Year
  Sex: Male

DRUGS (2)
  1. CEFAZOLIN INJECTION [Suspect]
     Active Substance: CEFAZOLIN
     Indication: STREPTOCOCCAL BACTERAEMIA
  2. CEFAZOLIN INJECTION [Suspect]
     Active Substance: CEFAZOLIN
     Indication: STAPHYLOCOCCAL BACTERAEMIA
     Route: 042

REACTIONS (3)
  - Tubulointerstitial nephritis [Recovering/Resolving]
  - Proteinuria [Recovering/Resolving]
  - Nephropathy toxic [Recovering/Resolving]
